FAERS Safety Report 6547441-4 (Version None)
Quarter: 2010Q1

REPORT INFORMATION
  Report Type: 
  Country: None (occurrence: None)
  Receive Date: 20100122
  Receipt Date: 20100111
  Transmission Date: 20100710
  Serious: Yes (Hospitalization)
  Sender: FDA-Public Use
  Company Number: UA-WYE-H12954510

PATIENT
  Age: 55 Year
  Sex: Male

DRUGS (2)
  1. TEMSIROLIMUS [Suspect]
     Indication: RENAL CELL CARCINOMA
     Dosage: UNKNOWN
     Route: 042
     Dates: start: 20090917, end: 20091224
  2. BEVACIZUMAB [Suspect]
     Indication: RENAL CELL CARCINOMA
     Dosage: UNKNOWN
     Route: 042
     Dates: start: 20090917, end: 20091224

REACTIONS (1)
  - LUNG ABSCESS [None]
